FAERS Safety Report 9149875 (Version 2)
Quarter: 2013Q1

REPORT INFORMATION
  Report Type: Spontaneous
  Country: TH (occurrence: TH)
  Receive Date: 20130308
  Receipt Date: 20130315
  Transmission Date: 20140127
  Serious: Yes (Death, Hospitalization)
  Sender: FDA-Public Use
  Company Number: PHHY2013TH023000

PATIENT
  Age: 57 Year
  Sex: Female

DRUGS (1)
  1. GLIVEC [Suspect]
     Indication: GASTROINTESTINAL STROMAL TUMOUR
     Dosage: 600 MG

REACTIONS (3)
  - Death [Fatal]
  - Pain [Unknown]
  - Malaise [Unknown]
